FAERS Safety Report 10284016 (Version 1)
Quarter: 2014Q3

REPORT INFORMATION
  Report Type: Report from Study
  Country: BR (occurrence: BR)
  Receive Date: 20140708
  Receipt Date: 20140708
  Transmission Date: 20150326
  Serious: Yes (Other)
  Sender: FDA-Public Use
  Company Number: PHHY2014BR083852

PATIENT
  Age: 60 Year
  Sex: Male
  Weight: 60 kg

DRUGS (1)
  1. CERTICAN [Suspect]
     Active Substance: EVEROLIMUS
     Indication: TRANSPLANT
     Dosage: 2 DF, UNK
     Route: 048
     Dates: start: 201202

REACTIONS (1)
  - Peripheral vascular disorder [Recovering/Resolving]
